FAERS Safety Report 5024352-7 (Version None)
Quarter: 2006Q2

REPORT INFORMATION
  Report Type: 
  Country: None (occurrence: None)
  Receive Date: 20060613
  Receipt Date: 20060607
  Transmission Date: 20061013
  Serious: Yes (Life-Threatening)
  Sender: FDA-Public Use
  Company Number: JP-JNJFOC-20060601897

PATIENT
  Age: 41 Year
  Sex: Female

DRUGS (1)
  1. LEUSTATIN [Suspect]
     Indication: B-CELL LYMPHOMA
     Route: 042

REACTIONS (2)
  - BLOOD LACTATE DEHYDROGENASE ABNORMAL [None]
  - TUMOUR HAEMORRHAGE [None]
